FAERS Safety Report 4905084-X (Version None)
Quarter: 2006Q1

REPORT INFORMATION
  Report Type: 
  Country: None (occurrence: None)
  Receive Date: 20060208
  Receipt Date: 20051107
  Transmission Date: 20060701
  Serious: Yes (Hospitalization)
  Sender: FDA-Public Use
  Company Number: US-GLAXOSMITHKLINE-A0581975A

PATIENT
  Age: 74 Year
  Sex: Female

DRUGS (3)
  1. PAROXETINE HCL [Suspect]
     Indication: DRUG USE FOR UNKNOWN INDICATION
     Dosage: 30MG PER DAY
     Route: 048
     Dates: start: 20051102
  2. PAXIL [Suspect]
     Indication: DRUG USE FOR UNKNOWN INDICATION
     Dosage: 30MG PER DAY
     Route: 048
     Dates: end: 20051102
  3. RETIN-A [Concomitant]
     Route: 061

REACTIONS (2)
  - CONVULSION [None]
  - LOSS OF CONSCIOUSNESS [None]
